FAERS Safety Report 6418893-5 (Version None)
Quarter: 2009Q4

REPORT INFORMATION
  Report Type: 
  Country: None (occurrence: None)
  Receive Date: 20091029
  Receipt Date: 20091023
  Transmission Date: 20100525
  Serious: Yes (Death)
  Sender: FDA-Public Use
  Company Number: US-SANOFI-SYNTHELABO-A03200904990

PATIENT
  Sex: Male

DRUGS (2)
  1. AMIODARONE [Suspect]
     Indication: ARRHYTHMIA
     Dosage: UNK
     Route: 042
  2. MULTAQ [Suspect]
     Indication: DRUG USE FOR UNKNOWN INDICATION
     Dosage: UNK
     Route: 048

REACTIONS (1)
  - CARDIAC ARREST [None]
